FAERS Safety Report 8016806-6 (Version None)
Quarter: 2012Q1

REPORT INFORMATION
  Report Type: 
  Country: None (occurrence: None)
  Receive Date: 20120102
  Receipt Date: 20111223
  Transmission Date: 20120608
  Serious: Yes (Death, Hospitalization)
  Sender: FDA-Public Use
  Company Number: IT-BRISTOL-MYERS SQUIBB COMPANY-16317109

PATIENT
  Age: 42 Year
  Sex: Female

DRUGS (3)
  1. MOVIPREP [Concomitant]
     Dates: start: 20111125
  2. IPILIMUMAB [Suspect]
     Indication: MALIGNANT MELANOMA
     Route: 042
     Dates: start: 20111031, end: 20111031
  3. OXYCODONE HCL [Concomitant]
     Dates: start: 20111111

REACTIONS (4)
  - NEOPLASM MALIGNANT [None]
  - CARDIO-RESPIRATORY ARREST [None]
  - THROMBOCYTOPENIA [None]
  - DYSPNOEA [None]
